FAERS Safety Report 8820834 (Version 1)
Quarter: 2012Q4

REPORT INFORMATION
  Report Type: 
  Country: JP (occurrence: JP)
  Receive Date: 20121002
  Receipt Date: 20121002
  Transmission Date: 20130627
  Serious: Yes (Other)
  Sender: FDA-Public Use
  Company Number: JP-ELI_LILLY_AND_COMPANY-JP201209006801

PATIENT
  Age: 42 Year
  Sex: Male
  Weight: 70.2 kg

DRUGS (1)
  1. HUMALOG LISPRO [Suspect]
     Indication: TYPE 2 DIABETES MELLITUS
     Route: 058

REACTIONS (2)
  - Renal impairment [Unknown]
  - Hypoglycaemia [Recovered/Resolved]
